FAERS Safety Report 5623663-1 (Version None)
Quarter: 2008Q1

REPORT INFORMATION
  Report Type: 
  Country: None (occurrence: None)
  Receive Date: 20080129
  Receipt Date: 20070725
  Transmission Date: 20080703
  Serious: Yes (Hospitalization)
  Sender: FDA-Public Use
  Company Number: WAES 0707USA04643

PATIENT
  Age: 40 Year
  Sex: Female
  Weight: 93.8946 kg

DRUGS (4)
  1. INVANZ [Suspect]
     Indication: LEUKOCYTOSIS
     Dosage: DAILY/IV
     Route: 042
     Dates: start: 20060612
  2. PHENERGAN INJECTION [Concomitant]
  3. REGLAN [Concomitant]
  4. MEPERIDINE HYDROCHLORIDE [Concomitant]

REACTIONS (1)
  - RASH MACULAR [None]
